FAERS Safety Report 11676585 (Version 2)
Quarter: 2015Q4

REPORT INFORMATION
  Report Type: Spontaneous
  Country: US (occurrence: US)
  Receive Date: 20151028
  Receipt Date: 20151105
  Transmission Date: 20160304
  Serious: No
  Sender: FDA-Public Use
  Company Number: US-PFIZER INC-2015359708

PATIENT
  Age: 40 Year
  Sex: Female
  Weight: 61 kg

DRUGS (8)
  1. GABAPENTIN. [Suspect]
     Active Substance: GABAPENTIN
     Indication: PARAESTHESIA
  2. GABAPENTIN. [Suspect]
     Active Substance: GABAPENTIN
     Indication: FIBROMYALGIA
     Dosage: 1200 MG, 1 IN THE MORNING, 1 IN THE AFTERNOON, AND 2 AT NIGHT
     Dates: start: 2015, end: 20151012
  3. STROVITE [Concomitant]
     Dosage: 1 DF, 1X/DAY
     Route: 048
  4. GABAPENTIN. [Suspect]
     Active Substance: GABAPENTIN
     Indication: MYALGIA
  5. SYNTHROID [Concomitant]
     Active Substance: LEVOTHYROXINE SODIUM
     Dosage: 25 ?G, 1X/DAY
     Route: 048
  6. XANAX [Concomitant]
     Active Substance: ALPRAZOLAM
     Dosage: 0.5 MG, AS NEEDED, 2X/DAY, WOULD TAKE 2 OR 3 A WEEK
     Route: 048
  7. GABAPENTIN. [Suspect]
     Active Substance: GABAPENTIN
     Indication: SJOGREN^S SYNDROME
     Dosage: 400 MG, UNK
     Dates: start: 201501
  8. GABAPENTIN. [Suspect]
     Active Substance: GABAPENTIN
     Indication: ARTHRALGIA

REACTIONS (3)
  - Radiculopathy [Unknown]
  - Drug ineffective for unapproved indication [Not Recovered/Not Resolved]
  - Spinal deformity [Unknown]

NARRATIVE: CASE EVENT DATE: 201501
